FAERS Safety Report 25541123 (Version 6)
Quarter: 2025Q3

REPORT INFORMATION
  Report Type: Report from Study
  Country: US (occurrence: US)
  Receive Date: 20250710
  Receipt Date: 20250904
  Transmission Date: 20251021
  Serious: Yes (Other)
  Sender: MALLINCKRODT
  Company Number: US-MALLINCKRODT-MNK202503731

PATIENT
  Age: 52 Year
  Sex: Female
  Weight: 128 kg

DRUGS (2)
  1. CORTICOTROPIN [Suspect]
     Active Substance: CORTICOTROPIN
     Indication: Sarcoidosis
     Route: 058
     Dates: start: 202409
  2. CORTICOTROPIN [Suspect]
     Active Substance: CORTICOTROPIN
     Indication: Eye disorder
     Route: 058
     Dates: start: 202508

REACTIONS (10)
  - Arteriovenous fistula site haemorrhage [Unknown]
  - Surgery [Unknown]
  - Illness [Unknown]
  - Gait disturbance [Unknown]
  - Dyspnoea [Unknown]
  - Somnolence [Unknown]
  - Catheter site pain [Not Recovered/Not Resolved]
  - Pain [Not Recovered/Not Resolved]
  - Fatigue [Unknown]
  - Insomnia [Unknown]

NARRATIVE: CASE EVENT DATE: 20250801
